FAERS Safety Report 24664134 (Version 1)
Quarter: 2024Q4

REPORT INFORMATION
  Report Type: Spontaneous
  Country: CN (occurrence: CN)
  Receive Date: 20241126
  Receipt Date: 20241126
  Transmission Date: 20250114
  Serious: Yes (Other)
  Sender: BIOGEN
  Company Number: CN-BAT-2024BAT001080

PATIENT
  Age: 54 Year
  Sex: Female
  Weight: 52.0 kg

DRUGS (2)
  1. TOFIDENCE [Suspect]
     Active Substance: TOCILIZUMAB-BAVI
     Indication: Joint swelling
     Dosage: ONCE ONLY
     Route: 041
     Dates: start: 20240822, end: 20240822
  2. SODIUM CHLORIDE [Concomitant]
     Active Substance: SODIUM CHLORIDE
     Indication: Vehicle solution use
     Dosage: ONCE ONLY
     Route: 041
     Dates: start: 20240822, end: 20240822

REACTIONS (3)
  - Condition aggravated [Recovering/Resolving]
  - Arthralgia [Recovering/Resolving]
  - Joint swelling [Recovering/Resolving]

NARRATIVE: CASE EVENT DATE: 20240822
